FAERS Safety Report 7529829-8 (Version None)
Quarter: 2011Q2

REPORT INFORMATION
  Report Type: 
  Country: None (occurrence: None)
  Receive Date: 20110607
  Receipt Date: 20110520
  Transmission Date: 20111010
  Serious: Yes (Hospitalization, Other)
  Sender: FDA-Public Use
  Company Number: CN-ALLERGAN-1105095US

PATIENT
  Age: 55 Year
  Sex: Female
  Weight: 48 kg

DRUGS (1)
  1. BOTOX [Suspect]
     Indication: SKIN WRINKLING
     Dosage: 20 UNITS, SINGLE
     Route: 030
     Dates: start: 20110228, end: 20110228

REACTIONS (7)
  - VISION BLURRED [None]
  - EXOPHTHALMOS [None]
  - INFLUENZA LIKE ILLNESS [None]
  - EYELID PTOSIS [None]
  - VIITH NERVE PARALYSIS [None]
  - DIPLOPIA [None]
  - SKIN TIGHTNESS [None]
